FAERS Safety Report 9730197 (Version 1)
Quarter: 2013Q4

REPORT INFORMATION
  Report Type: Spontaneous
  Country: US (occurrence: US)
  Receive Date: 20131204
  Receipt Date: 20131204
  Transmission Date: 20140711
  Serious: No
  Sender: FDA-Public Use
  Company Number: US-ENDO PHARMACEUTICALS INC.-APIR20130012

PATIENT
  Sex: Female

DRUGS (2)
  1. ALPRAZOLAM IR TABLETS 0.25MG [Suspect]
     Indication: PANIC DISORDER
     Route: 048
     Dates: start: 20130914, end: 20130919
  2. ALPRAZOLAM IR TABLETS 0.25MG [Suspect]
     Indication: ANXIETY DISORDER
     Route: 048
     Dates: start: 20130920

REACTIONS (3)
  - Panic attack [Not Recovered/Not Resolved]
  - Condition aggravated [Not Recovered/Not Resolved]
  - Drug ineffective [Not Recovered/Not Resolved]
